FAERS Safety Report 17067042 (Version 3)
Quarter: 2020Q2

REPORT INFORMATION
  Report Type: Report from Study
  Country: GB (occurrence: GB)
  Receive Date: 20191122
  Receipt Date: 20200608
  Transmission Date: 20200713
  Serious: Yes (Other)
  Sender: FDA-Public Use
  Company Number: PHHY2015GB055016

PATIENT
  Age: 51 Year
  Sex: Female

DRUGS (1)
  1. GILENYA [Suspect]
     Active Substance: FINGOLIMOD HYDROCHLORIDE
     Indication: MULTIPLE SCLEROSIS
     Dosage: 0.5 MG, QD
     Route: 048
     Dates: start: 20140205, end: 201703

REACTIONS (22)
  - Urinary retention [Unknown]
  - Alanine aminotransferase increased [Recovered/Resolved]
  - Insomnia [Unknown]
  - Hepatic steatosis [Unknown]
  - Menopausal symptoms [Recovered/Resolved]
  - Gamma-glutamyltransferase increased [Not Recovered/Not Resolved]
  - Aspartate aminotransferase increased [Unknown]
  - Viral infection [Unknown]
  - Fatigue [Unknown]
  - Lymphocyte count decreased [Not Recovered/Not Resolved]
  - Liver function test increased [Unknown]
  - Hyperhidrosis [Recovered/Resolved]
  - Headache [Not Recovered/Not Resolved]
  - Dysphagia [Recovered/Resolved]
  - Blood alkaline phosphatase increased [Not Recovered/Not Resolved]
  - Depression [Unknown]
  - Constipation [Unknown]
  - Hypertension [Unknown]
  - Alanine aminotransferase increased [Unknown]
  - Cough [Unknown]
  - Back pain [Recovered/Resolved]
  - Pollakiuria [Unknown]

NARRATIVE: CASE EVENT DATE: 20140417
